FAERS Safety Report 10154906 (Version 2)
Quarter: 2014Q3

REPORT INFORMATION
  Report Type: Report from Study
  Country: CA (occurrence: CA)
  Receive Date: 20140506
  Receipt Date: 20140714
  Transmission Date: 20150326
  Serious: Yes (Other)
  Sender: FDA-Public Use
  Company Number: CA-SA-2014SA054254

PATIENT
  Age: 29 Year
  Sex: Female
  Weight: 86 kg

DRUGS (4)
  1. STELARA [Suspect]
     Active Substance: USTEKINUMAB
     Indication: PSORIASIS
     Dosage: FREQUENCY: ONCE EVERY 8 WEEKS
     Route: 065
     Dates: start: 2013
  2. LOVENOX [Suspect]
     Active Substance: ENOXAPARIN SODIUM
     Indication: THROMBOSIS
     Dosage: FORM: SOLUTION
     Route: 058
     Dates: start: 2012
  3. LOVENOX [Suspect]
     Active Substance: ENOXAPARIN SODIUM
     Indication: THROMBOSIS
     Route: 065
     Dates: start: 2013
  4. STELARA [Suspect]
     Active Substance: USTEKINUMAB
     Indication: PSORIASIS
     Dosage: FREQUENCY: 1 EVERY 12 WEEKS; FORM: SOLUTION
     Route: 058

REACTIONS (4)
  - Drug ineffective [Unknown]
  - Exposure during pregnancy [Unknown]
  - Thrombosis [Unknown]
  - Premature labour [Unknown]

NARRATIVE: CASE EVENT DATE: 2013
